FAERS Safety Report 13420674 (Version 1)
Quarter: 2017Q2

REPORT INFORMATION
  Report Type: Spontaneous
  Country: US (occurrence: US)
  Receive Date: 20170409
  Receipt Date: 20170409
  Transmission Date: 20170830
  Serious: No
  Sender: FDA-Public Use
  Company Number: US-TEVA-751586USA

PATIENT
  Age: 74 Year
  Sex: Male
  Weight: 77.18 kg

DRUGS (3)
  1. NUVIGIL [Suspect]
     Active Substance: ARMODAFINIL
     Indication: SLEEP APNOEA SYNDROME
     Dates: start: 2015, end: 20170309
  2. TOPROL XL [Concomitant]
     Active Substance: METOPROLOL SUCCINATE
     Indication: EXTRASYSTOLES
  3. LOVASTATIN. [Concomitant]
     Active Substance: LOVASTATIN
     Indication: BLOOD CHOLESTEROL INCREASED

REACTIONS (4)
  - Oral pain [Recovered/Resolved]
  - Intentional product misuse [Unknown]
  - Aphthous ulcer [Recovering/Resolving]
  - Tongue ulceration [Recovered/Resolved]

NARRATIVE: CASE EVENT DATE: 2015
